FAERS Safety Report 6765061-3 (Version None)
Quarter: 2010Q2

REPORT INFORMATION
  Report Type: 
  Country: None (occurrence: None)
  Receive Date: 20100609
  Receipt Date: 20100609
  Transmission Date: 20101027
  Serious: Yes (Life-Threatening, Hospitalization)
  Sender: FDA-Public Use
  Company Number: None

PATIENT
  Age: 62 Year
  Sex: Male
  Weight: 99.16 kg

DRUGS (2)
  1. THEOPHYLLINE [Suspect]
     Indication: ATRIAL FIBRILLATION
     Dosage: 300 MG BID PO
     Route: 048
     Dates: start: 19991109, end: 20100515
  2. THEOPHYLLINE [Suspect]
     Indication: CHRONIC OBSTRUCTIVE PULMONARY DISEASE
     Dosage: 300 MG BID PO
     Route: 048
     Dates: start: 19991109, end: 20100515

REACTIONS (5)
  - BLOOD MAGNESIUM [None]
  - CONFUSIONAL STATE [None]
  - RENAL FAILURE ACUTE [None]
  - RHABDOMYOLYSIS [None]
  - TACHYCARDIA [None]
